FAERS Safety Report 8599568 (Version 4)
Quarter: 2013Q1

REPORT INFORMATION
  Report Type: Spontaneous
  Country: US (occurrence: US)
  Receive Date: 20120605
  Receipt Date: 20130228
  Transmission Date: 20140127
  Serious: Yes (Other)
  Sender: FDA-Public Use
  Company Number: US-JNJFOC-20120521103

PATIENT
  Age: 44 Year
  Sex: Female

DRUGS (9)
  1. DOXORUBICIN HYDROCHLORIDE (DOXIL) [Suspect]
     Indication: OVARIAN CANCER
     Dosage: MAINTENANCE DOSE FOR A TOTAL CUMULATIVE DOSE OF 1.696 MG
     Route: 042
     Dates: end: 201004
  2. DOXORUBICIN HYDROCHLORIDE (DOXIL) [Suspect]
     Indication: OVARIAN CANCER
     Dosage: 3 CYCLES GIVEN
     Route: 042
     Dates: start: 20070713, end: 20070914
  3. CISPLATIN [Suspect]
     Indication: OVARIAN CANCER
     Dosage: X 3 DAYS FOR 4 CYCLES
     Route: 033
     Dates: start: 20050614, end: 20050810
  4. VELIPARIB [Suspect]
     Indication: OVARIAN CANCER
     Route: 048
     Dates: start: 201006, end: 201104
  5. CARBOPLATIN [Suspect]
     Indication: OVARIAN CANCER
     Dosage: X 3 DAYS FOR 4 CYCLES
     Route: 065
     Dates: start: 20070713, end: 20070914
  6. PACLITAXEL [Suspect]
     Indication: OVARIAN CANCER
     Dosage: X 3 DAYS FOR 4 CYCLES
     Route: 065
     Dates: start: 20070713, end: 20070914
  7. TOPOTECAN [Suspect]
     Indication: OVARIAN CANCER
     Dosage: FOR 4 CYCLES
     Route: 065
     Dates: start: 20050614, end: 20050802
  8. TOPOTECAN [Suspect]
     Indication: OVARIAN CANCER
     Route: 065
     Dates: start: 20050829
  9. CYCLOPHOSPHAMIDE [Suspect]
     Indication: OVARIAN CANCER
     Route: 065
     Dates: start: 201006, end: 201104

REACTIONS (4)
  - Carbohydrate antigen 125 increased [Recovering/Resolving]
  - Thrombocytopenia [Recovering/Resolving]
  - Squamous cell carcinoma [Unknown]
  - Squamous cell carcinoma of head and neck [Unknown]
